FAERS Safety Report 7070964-9 (Version None)
Quarter: 2010Q4

REPORT INFORMATION
  Report Type: 
  Country: None (occurrence: None)
  Receive Date: 20101029
  Receipt Date: 20101025
  Transmission Date: 20110411
  Serious: Yes (Death)
  Sender: FDA-Public Use
  Company Number: US-B.I. PHARMACEUTICALS,INC./RIDGEFIELD-2010-BP-11954BP

PATIENT
  Sex: Male

DRUGS (2)
  1. FLOMAX [Suspect]
     Indication: DYSURIA
     Route: 048
     Dates: start: 20090909, end: 20101007
  2. FLOMAX [Suspect]
     Indication: PROSTATE CANCER

REACTIONS (2)
  - HEPATIC FAILURE [None]
  - PROSTATE CANCER METASTATIC [None]
